APPROVED DRUG PRODUCT: METHOTREXATE SODIUM
Active Ingredient: METHOTREXATE SODIUM
Strength: EQ 200MG BASE/8ML (EQ 25MG BASE/ML)
Dosage Form/Route: INJECTABLE;INJECTION
Application: A089342 | Product #001
Applicant: HIKMA PHARMACEUTICALS USA INC
Approved: Sep 16, 1986 | RLD: No | RS: Yes | Type: RX